FAERS Safety Report 21723727 (Version 9)
Quarter: 2023Q2

REPORT INFORMATION
  Report Type: Report from Study
  Country: PL (occurrence: PL)
  Receive Date: 20221213
  Receipt Date: 20230606
  Transmission Date: 20230722
  Serious: Yes (Other)
  Sender: FDA-Public Use
  Company Number: PL-PFIZER INC-PV202200117426

PATIENT
  Age: 41 Year
  Sex: Male
  Weight: 71 kg

DRUGS (2)
  1. ABROCITINIB [Suspect]
     Active Substance: ABROCITINIB
     Indication: Dermatitis atopic
     Dosage: 2 TABLET, 1X/DAY (ONCE A DAY TWO TABLETS OF 100 MG ONE)
     Route: 048
     Dates: start: 20200710, end: 20220920
  2. DUTILOX [Concomitant]
     Dosage: 30 MG, 1X/DAY
     Route: 048
     Dates: start: 20191004

REACTIONS (1)
  - Deep vein thrombosis [Not Recovered/Not Resolved]

NARRATIVE: CASE EVENT DATE: 20220919
